FAERS Safety Report 7935855-7 (Version None)
Quarter: 2011Q4

REPORT INFORMATION
  Report Type: 
  Country: None (occurrence: None)
  Receive Date: 20111123
  Receipt Date: 20111121
  Transmission Date: 20120403
  Serious: Yes (Other)
  Sender: FDA-Public Use
  Company Number: US-VERTEX PHARMACEUTICALS INC.-AE-2011-001315

PATIENT
  Sex: Female

DRUGS (3)
  1. RIBAVIRIN [Concomitant]
     Indication: HEPATITIS C
  2. INCIVEK [Suspect]
     Indication: HEPATITIS C
     Route: 048
  3. INTERFERON [Concomitant]
     Indication: HEPATITIS C

REACTIONS (4)
  - PORPHYRIA NON-ACUTE [None]
  - RASH [None]
  - PRURITUS [None]
  - TOTAL BILE ACIDS INCREASED [None]
